FAERS Safety Report 21296772 (Version 3)
Quarter: 2022Q3

REPORT INFORMATION
  Report Type: Spontaneous
  Country: CN (occurrence: CN)
  Receive Date: 20220906
  Receipt Date: 20220926
  Transmission Date: 20221026
  Serious: Yes (Death, Life-Threatening, Hospitalization, Other)
  Sender: FDA-Public Use
  Company Number: CN-SA-2022SA363662

PATIENT
  Age: 35 Year
  Sex: Male

DRUGS (19)
  1. ANTI-THYMOCYTE GLOBULIN (RABBIT) NOS [Suspect]
     Active Substance: LAPINE T-LYMPHOCYTE IMMUNE GLOBULIN
     Indication: Immunosuppressant drug therapy
     Dosage: 1.83 MG/KG (OTHER EXPIRATION DATE 31-OCT-2022)
     Dates: start: 2020, end: 2020
  2. ANTI-THYMOCYTE GLOBULIN (RABBIT) NOS [Suspect]
     Active Substance: LAPINE T-LYMPHOCYTE IMMUNE GLOBULIN
     Dosage: 50 MG ON DAY 1
     Dates: start: 2020, end: 2020
  3. ANTI-THYMOCYTE GLOBULIN (RABBIT) NOS [Suspect]
     Active Substance: LAPINE T-LYMPHOCYTE IMMUNE GLOBULIN
     Dosage: 25 MG
     Dates: start: 2020, end: 2020
  4. PREDNISONE [Suspect]
     Active Substance: PREDNISONE
     Indication: Immunosuppressant drug therapy
  5. PREDNISONE [Suspect]
     Active Substance: PREDNISONE
     Dosage: TAPERED
  6. METHYLPREDNISOLONE [Suspect]
     Active Substance: METHYLPREDNISOLONE
     Indication: Immunosuppressant drug therapy
     Dosage: 21.15 MG/KG
     Dates: start: 2020, end: 2020
  7. METHYLPREDNISOLONE [Suspect]
     Active Substance: METHYLPREDNISOLONE
     Dosage: 1000 MG DURING OPERATION
     Dates: start: 2020, end: 2020
  8. METHYLPREDNISOLONE [Suspect]
     Active Substance: METHYLPREDNISOLONE
     Dosage: 500 MG
     Dates: start: 2020, end: 2020
  9. METHYLPREDNISOLONE [Suspect]
     Active Substance: METHYLPREDNISOLONE
     Dosage: 240 MG
     Dates: start: 2020, end: 2020
  10. METHYLPREDNISOLONE [Suspect]
     Active Substance: METHYLPREDNISOLONE
     Dosage: 120 MG
     Dates: start: 2020
  11. METHYLPREDNISOLONE [Suspect]
     Active Substance: METHYLPREDNISOLONE
     Dosage: 80 MG
     Dates: start: 2020, end: 2020
  12. METHYLPREDNISOLONE [Suspect]
     Active Substance: METHYLPREDNISOLONE
     Dosage: 40 MG
  13. BASILIXIMAB [Suspect]
     Active Substance: BASILIXIMAB
     Indication: Immunosuppressant drug therapy
     Dosage: 0.24 MG/KG
     Dates: start: 2020, end: 2020
  14. BASILIXIMAB [Suspect]
     Active Substance: BASILIXIMAB
     Dosage: 20 MG DURING OPERATION
     Dates: start: 2020, end: 2020
  15. CYCLOSPORINE [Suspect]
     Active Substance: CYCLOSPORINE
     Indication: Immunosuppressant drug therapy
     Dosage: UNK
  16. TACROLIMUS [Suspect]
     Active Substance: TACROLIMUS
     Indication: Immunosuppressant drug therapy
     Dosage: CONCENTRATION WAS MAINTAINED AT 6-8 NG/ML
  17. TACROLIMUS [Suspect]
     Active Substance: TACROLIMUS
     Dosage: TACROLIMUS WAS USED AGAIN ON THE 63RD DAY
  18. MYCOPHENOLATE MOFETIL [Suspect]
     Active Substance: MYCOPHENOLATE MOFETIL
     Indication: Immunosuppressant drug therapy
  19. SULFAMETHOXAZOLE\TRIMETHOPRIM [Concomitant]
     Active Substance: SULFAMETHOXAZOLE\TRIMETHOPRIM
     Indication: Antifungal prophylaxis
     Route: 048

REACTIONS (29)
  - Cardiac arrest [Fatal]
  - Ventricular fibrillation [Fatal]
  - Disseminated intravascular coagulation [Fatal]
  - Renal haemorrhage [Fatal]
  - Haematuria [Fatal]
  - Dysuria [Fatal]
  - Pollakiuria [Fatal]
  - Acute myocardial infarction [Fatal]
  - Mitral valve incompetence [Fatal]
  - Angina pectoris [Fatal]
  - Sinus tachycardia [Fatal]
  - Chest pain [Fatal]
  - Peripheral artery thrombosis [Fatal]
  - Ventricular extrasystoles [Fatal]
  - Cardiac murmur [Fatal]
  - Chest discomfort [Fatal]
  - Tricuspid valve incompetence [Fatal]
  - Endocarditis bacterial [Fatal]
  - Endocarditis [Fatal]
  - Corynebacterium infection [Fatal]
  - Cough [Fatal]
  - Anuria [Fatal]
  - Pyrexia [Fatal]
  - Haemoptysis [Fatal]
  - Cardiac valve vegetation [Fatal]
  - Dyspnoea [Fatal]
  - Septic shock [Fatal]
  - Enterococcal infection [Unknown]
  - Pseudomonas infection [Unknown]

NARRATIVE: CASE EVENT DATE: 20210201
